FAERS Safety Report 16933602 (Version 2)
Quarter: 2024Q3

REPORT INFORMATION
  Report Type: Spontaneous
  Country: GB (occurrence: GB)
  Receive Date: 20191018
  Receipt Date: 20240711
  Transmission Date: 20241017
  Serious: No
  Sender: ASTELLAS
  Company Number: GB-ASTELLAS-2019US040668

PATIENT
  Sex: Male

DRUGS (1)
  1. XTANDI [Suspect]
     Active Substance: ENZALUTAMIDE
     Indication: Hormone-refractory prostate cancer
     Route: 048
     Dates: start: 20170526

REACTIONS (1)
  - Dysphagia [Not Recovered/Not Resolved]
